FAERS Safety Report 6960719-5 (Version None)
Quarter: 2010Q3

REPORT INFORMATION
  Report Type: 
  Country: None (occurrence: None)
  Receive Date: 20100901
  Receipt Date: 20100831
  Transmission Date: 20110219
  Serious: Yes (Other)
  Sender: FDA-Public Use
  Company Number: IE-ROCHE-717668

PATIENT
  Sex: Female

DRUGS (2)
  1. TAMIFLU [Suspect]
     Indication: H1N1 INFLUENZA
     Route: 048
     Dates: start: 20100408, end: 20100413
  2. EZETROL [Concomitant]
     Indication: LIPIDS INCREASED
     Dosage: DOSE: 40
     Dates: start: 20070801

REACTIONS (1)
  - UVEITIS [None]
